FAERS Safety Report 11351214 (Version 1)
Quarter: 2015Q3

REPORT INFORMATION
  Report Type: Spontaneous
  Country: GB (occurrence: GB)
  Receive Date: 20150807
  Receipt Date: 20150807
  Transmission Date: 20151125
  Serious: Yes (Other)
  Sender: FDA-Public Use
  Company Number: GB-AUROBINDO-AUR-APL-2015-06958

PATIENT

DRUGS (4)
  1. OMEPRAZOLE. [Concomitant]
     Active Substance: OMEPRAZOLE
     Indication: PRODUCT USED FOR UNKNOWN INDICATION
     Dosage: 20 MG, ONCE A DAY
     Route: 065
  2. METRONIDAZOLE TABLETS BP 200 MG [Suspect]
     Active Substance: METRONIDAZOLE
     Dosage: 400 MG, 3 TIMES A DAY
     Route: 048
  3. FOLIC ACID. [Concomitant]
     Active Substance: FOLIC ACID
     Indication: FOLATE DEFICIENCY
     Route: 065
  4. METRONIDAZOLE TABLETS BP 200 MG [Suspect]
     Active Substance: METRONIDAZOLE
     Indication: ABSCESS
     Dosage: 200 MG, 3 TIMES A DAY
     Route: 048

REACTIONS (11)
  - Influenza like illness [Recovered/Resolved]
  - Decreased appetite [Recovered/Resolved with Sequelae]
  - Fatigue [Recovered/Resolved]
  - Nausea [Recovered/Resolved]
  - Hot flush [Recovered/Resolved]
  - Muscular weakness [Recovered/Resolved]
  - Dizziness [Recovered/Resolved]
  - Abdominal pain upper [Recovered/Resolved]
  - Pallor [Recovered/Resolved with Sequelae]
  - Lethargy [Recovered/Resolved]
  - Diarrhoea [Recovered/Resolved]

NARRATIVE: CASE EVENT DATE: 20150707
